FAERS Safety Report 25601337 (Version 2)
Quarter: 2025Q3

REPORT INFORMATION
  Report Type: Spontaneous
  Country: US (occurrence: US)
  Receive Date: 20250724
  Receipt Date: 20250827
  Transmission Date: 20251020
  Serious: Yes (Hospitalization)
  Sender: ROCHE
  Company Number: US-ROCHE-10000339465

PATIENT
  Age: 82 Year
  Sex: Male

DRUGS (1)
  1. ERIVEDGE [Suspect]
     Active Substance: VISMODEGIB
     Indication: Basal cell carcinoma
     Route: 048
     Dates: start: 20250117

REACTIONS (5)
  - Alopecia [Unknown]
  - Muscle spasms [Unknown]
  - Pain [Unknown]
  - Madarosis [Unknown]
  - Underdose [Unknown]

NARRATIVE: CASE EVENT DATE: 20250714
